FAERS Safety Report 11590735 (Version 6)
Quarter: 2016Q1

REPORT INFORMATION
  Report Type: Report from Study
  Country: US (occurrence: US)
  Receive Date: 20151002
  Receipt Date: 20160222
  Transmission Date: 20160525
  Serious: Yes (Hospitalization)
  Sender: FDA-Public Use
  Company Number: US-ACTELION-A-NJ2015-124717

PATIENT
  Age: 84 Year
  Sex: Female

DRUGS (4)
  1. SILDENAFIL. [Concomitant]
     Active Substance: SILDENAFIL
     Dosage: UNK
     Dates: start: 201601
  2. TRACLEER [Suspect]
     Active Substance: BOSENTAN
     Dosage: UNK
     Route: 048
     Dates: start: 201601
  3. SILDENAFIL. [Concomitant]
     Active Substance: SILDENAFIL
     Dosage: UNK
  4. TRACLEER [Suspect]
     Active Substance: BOSENTAN
     Indication: PULMONARY ARTERIAL HYPERTENSION
     Dosage: UNK
     Route: 048

REACTIONS (11)
  - Colitis [Unknown]
  - Loss of consciousness [Unknown]
  - Feeling abnormal [Unknown]
  - Dyspnoea [Unknown]
  - Anaemia [Recovering/Resolving]
  - Ulcer haemorrhage [Unknown]
  - Transfusion [Recovering/Resolving]
  - Gastric haemorrhage [Recovering/Resolving]
  - Confusional state [Unknown]
  - Vision blurred [Unknown]
  - Faeces discoloured [Unknown]
